FAERS Safety Report 24012764 (Version 1)
Quarter: 2024Q2

REPORT INFORMATION
  Report Type: Spontaneous
  Country: CA (occurrence: CA)
  Receive Date: 20240626
  Receipt Date: 20240626
  Transmission Date: 20240715
  Serious: Yes (Other)
  Sender: FDA-Public Use
  Company Number: CA-NOVOPROD-1242077

PATIENT
  Age: 57 Year
  Sex: Female
  Weight: 95.3 kg

DRUGS (1)
  1. SAXENDA [Suspect]
     Active Substance: LIRAGLUTIDE
     Indication: Weight control
     Dosage: 3 MG, QD
     Route: 058
     Dates: start: 20200101, end: 20200901

REACTIONS (3)
  - Alopecia [Recovered/Resolved]
  - Teeth brittle [Recovered/Resolved]
  - Drug ineffective [Unknown]
